FAERS Safety Report 6666489-2 (Version None)
Quarter: 2010Q2

REPORT INFORMATION
  Report Type: 
  Country: None (occurrence: None)
  Receive Date: 20100402
  Receipt Date: 20100324
  Transmission Date: 20101027
  Serious: Yes (Hospitalization, Other)
  Sender: FDA-Public Use
  Company Number: US-AMGEN-QUU396064

PATIENT
  Age: 66 Year
  Sex: Female

DRUGS (16)
  1. EPOGEN [Suspect]
     Indication: RENAL FAILURE CHRONIC
     Dates: start: 20091224, end: 20100301
  2. IMODIUM [Concomitant]
  3. LASIX [Concomitant]
  4. LEVOTHYROXINE SODIUM [Concomitant]
  5. MIDODRINE HYDROCHLORIDE [Concomitant]
  6. PERCOCET [Concomitant]
  7. OXYCONTIN [Concomitant]
  8. RESTORIL [Concomitant]
  9. PROTONIX [Concomitant]
  10. AMIODARONE HCL [Concomitant]
  11. FOLIC ACID [Concomitant]
  12. CALCIUM [Concomitant]
  13. VITAMIN C [Concomitant]
  14. ATARAX [Concomitant]
  15. NEPHROCAPS [Concomitant]
  16. PAXIL [Concomitant]

REACTIONS (14)
  - ANAEMIA [None]
  - BLOOD PRODUCT TRANSFUSION DEPENDENT [None]
  - CARDIAC FAILURE CONGESTIVE [None]
  - CONTUSION [None]
  - DECREASED APPETITE [None]
  - DEPRESSED LEVEL OF CONSCIOUSNESS [None]
  - DRUG INEFFECTIVE [None]
  - FAILURE TO THRIVE [None]
  - HAEMOCHROMATOSIS [None]
  - LOCALISED OEDEMA [None]
  - PAIN IN EXTREMITY [None]
  - PLEURAL EFFUSION [None]
  - RESPIRATORY DEPRESSION [None]
  - VENOUS INSUFFICIENCY [None]
